FAERS Safety Report 15170859 (Version 1)
Quarter: 2018Q3

REPORT INFORMATION
  Report Type: Spontaneous
  Country: US (occurrence: US)
  Receive Date: 20180622
  Receipt Date: 20180622
  Transmission Date: 20181010
  Serious: Yes (Death)
  Sender: FDA-Public Use
  Company Number: None

PATIENT
  Sex: Female

DRUGS (6)
  1. GABAPENTIN 300MG [Concomitant]
     Active Substance: GABAPENTIN
  2. VICTOZA [Concomitant]
     Active Substance: LIRAGLUTIDE
  3. OXYCODONE 20MG [Concomitant]
  4. TROSPIUM 20MG [Concomitant]
  5. ALPRAZOLAM 1 MG [Concomitant]
  6. REMICADE [Suspect]
     Active Substance: INFLIXIMAB
     Indication: PSORIATIC ARTHROPATHY
     Dosage: ?          OTHER FREQUENCY:EVERY 8 WEEKS;?
     Route: 042
     Dates: start: 20180517

REACTIONS (1)
  - Death [None]
